FAERS Safety Report 4317387-0 (Version None)
Quarter: 2004Q1

REPORT INFORMATION
  Report Type: 
  Country: None (occurrence: None)
  Receive Date: 20040312
  Receipt Date: 20040302
  Transmission Date: 20041129
  Serious: Yes (Other)
  Sender: FDA-Public Use
  Company Number: 2004201788AT

PATIENT
  Age: 72 Year
  Sex: Female
  Weight: 70 kg

DRUGS (6)
  1. GENOTROPIN [Suspect]
     Indication: HYPOPITUITARISM
     Dosage: SEE IMAGE
     Dates: start: 20010620, end: 20020717
  2. GENOTROPIN [Suspect]
     Indication: HYPOPITUITARISM
     Dosage: SEE IMAGE
     Dates: start: 20000307
  3. LESCOL [Concomitant]
  4. THYREX (LEVOTHYROXINE SODIUM) [Concomitant]
  5. ACTONEL [Concomitant]
  6. LIVIEL [Concomitant]

REACTIONS (1)
  - MULTIPLE MYELOMA [None]
